FAERS Safety Report 6261412-7 (Version None)
Quarter: 2009Q3

REPORT INFORMATION
  Report Type: 
  Country: None (occurrence: None)
  Receive Date: 20090709
  Receipt Date: 20090701
  Transmission Date: 20100115
  Serious: Yes (Other)
  Sender: FDA-Public Use
  Company Number: GB-PFIZER INC-2009235436

PATIENT

DRUGS (2)
  1. HEPARIN SODIUM [Suspect]
     Route: 065
  2. MEFENAMIC ACID [Interacting]

REACTIONS (2)
  - DRUG INTERACTION [None]
  - HAEMORRHAGIC DIATHESIS [None]
